FAERS Safety Report 19840182 (Version 1)
Quarter: 2021Q3

REPORT INFORMATION
  Report Type: Spontaneous
  Country: US (occurrence: US)
  Receive Date: 20210915
  Receipt Date: 20210915
  Transmission Date: 20211014
  Serious: Yes (Other)
  Sender: FDA-Public Use
  Company Number: US-BRISTOL-MYERS SQUIBB COMPANY-BMS-2021-089227

PATIENT
  Age: 15 Year
  Sex: Female
  Weight: 70.6 kg

DRUGS (5)
  1. SPRYCEL [Suspect]
     Active Substance: DASATINIB
     Dosage: 2X50 MG (100)
     Route: 048
     Dates: start: 2021
  2. SPRYCEL [Suspect]
     Active Substance: DASATINIB
     Indication: ACUTE LYMPHOCYTIC LEUKAEMIA
     Dosage: UNK
     Route: 048
  3. SPRYCEL [Suspect]
     Active Substance: DASATINIB
     Dosage: 100 MILLIGRAM, QD
     Route: 048
  4. SPRYCEL [Suspect]
     Active Substance: DASATINIB
     Dosage: 50 MILLIGRAM
     Route: 048
     Dates: start: 2021
  5. SPRYCEL [Suspect]
     Active Substance: DASATINIB
     Dosage: 20 MILLIGRAM
     Route: 048

REACTIONS (2)
  - Pancreatitis [Unknown]
  - Intentional product use issue [Unknown]
